FAERS Safety Report 13846359 (Version 1)
Quarter: 2017Q3

REPORT INFORMATION
  Report Type: Spontaneous
  Country: US (occurrence: US)
  Receive Date: 20170808
  Receipt Date: 20170808
  Transmission Date: 20171127
  Serious: No
  Sender: FDA-Public Use
  Company Number: US-ROCHE-799163

PATIENT
  Age: 63 Year
  Sex: Female
  Weight: 60.3 kg

DRUGS (4)
  1. AMBEN [Concomitant]
     Dosage: QHS PRN
     Route: 065
  2. GENERIC COMPONENT(S) NOT KNOWN [Concomitant]
     Active Substance: UNSPECIFIED INGREDIENT
     Dosage: FREQUENCY: QD
     Route: 065
  3. SIMVASTATIN. [Concomitant]
     Active Substance: SIMVASTATIN
     Dosage: FREQUENCY: QD
     Route: 065
  4. BONIVA [Suspect]
     Active Substance: IBANDRONATE SODIUM
     Indication: OSTEOPENIA
     Route: 048

REACTIONS (5)
  - Swelling face [Recovering/Resolving]
  - Erythema [Recovering/Resolving]
  - Tooth disorder [Recovering/Resolving]
  - Pain in jaw [Recovering/Resolving]
  - Temporomandibular joint syndrome [Recovering/Resolving]

NARRATIVE: CASE EVENT DATE: 20110629
